FAERS Safety Report 5519613-9 (Version None)
Quarter: 2007Q4

REPORT INFORMATION
  Report Type: 
  Country: None (occurrence: None)
  Receive Date: 20071114
  Receipt Date: 20071101
  Transmission Date: 20080405
  Serious: Yes (Hospitalization)
  Sender: FDA-Public Use
  Company Number: 2007BI018741

PATIENT
  Age: 31 Year
  Sex: Male
  Weight: 96.6162 kg

DRUGS (5)
  1. NATALIZUMAB [Suspect]
     Indication: MULTIPLE SCLEROSIS
     Dosage: 300 MG;QM;IV
     Route: 042
     Dates: start: 20070725
  2. RELPAX [Concomitant]
  3. ACIPHEX [Concomitant]
  4. REGLAN [Concomitant]
  5. LEVSIN [Concomitant]

REACTIONS (8)
  - CARDIO-RESPIRATORY ARREST [None]
  - CONVULSION [None]
  - HEADACHE [None]
  - MULTIPLE SCLEROSIS RELAPSE [None]
  - NEPHROLITHIASIS [None]
  - NERVOUS SYSTEM DISORDER [None]
  - RESPIRATORY DISTRESS [None]
  - URETERIC HAEMORRHAGE [None]
